FAERS Safety Report 18870521 (Version 1)
Quarter: 2021Q1

REPORT INFORMATION
  Report Type: Spontaneous
  Country: CA (occurrence: CA)
  Receive Date: 20210209
  Receipt Date: 20210209
  Transmission Date: 20210420
  Serious: Yes (Hospitalization, Other)
  Sender: FDA-Public Use
  Company Number: CA-JNJFOC-20210214057

PATIENT
  Sex: Female

DRUGS (4)
  1. XARELTO [Suspect]
     Active Substance: RIVAROXABAN
     Indication: PRODUCT USED FOR UNKNOWN INDICATION
     Dosage: UNK
     Route: 048
  2. ZEJULA [Concomitant]
     Active Substance: NIRAPARIB
     Indication: B-CELL SMALL LYMPHOCYTIC LYMPHOMA
     Dosage: 200 MG, QD
  3. ZEJULA [Concomitant]
     Active Substance: NIRAPARIB
     Indication: B-CELL SMALL LYMPHOCYTIC LYMPHOMA
     Dosage: 100 MG, QD
  4. ZEJULA [Concomitant]
     Active Substance: NIRAPARIB
     Indication: B-CELL SMALL LYMPHOCYTIC LYMPHOMA
     Dosage: 300 MG

REACTIONS (7)
  - Thrombocytopenia [Unknown]
  - Gastrointestinal haemorrhage [Unknown]
  - Intestinal obstruction [Unknown]
  - Haemoglobin decreased [Unknown]
  - Early satiety [Unknown]
  - Dyspepsia [Unknown]
  - Platelet count decreased [Unknown]
